FAERS Safety Report 5301416-1 (Version None)
Quarter: 2007Q2

REPORT INFORMATION
  Report Type: 
  Country: None (occurrence: None)
  Receive Date: 20070418
  Receipt Date: 20070410
  Transmission Date: 20071010
  Serious: Yes (Other)
  Sender: FDA-Public Use
  Company Number: PL-PFIZER INC-2007018074

PATIENT
  Sex: Male
  Weight: 70 kg

DRUGS (4)
  1. CARDURA [Suspect]
     Route: 048
  2. MONONIT [Concomitant]
     Route: 048
  3. NOOTROPIL [Concomitant]
     Route: 048
     Dates: start: 20050913
  4. LACTULOSE [Concomitant]
     Route: 048
     Dates: start: 20061001

REACTIONS (5)
  - ASTHENIA [None]
  - HEART RATE IRREGULAR [None]
  - HYPERHIDROSIS [None]
  - MALAISE [None]
  - MYOCARDIAL ISCHAEMIA [None]
